FAERS Safety Report 9393930 (Version 1)
Quarter: 2013Q3

REPORT INFORMATION
  Report Type: Spontaneous
  Country: PT (occurrence: PT)
  Receive Date: 20130710
  Receipt Date: 20130710
  Transmission Date: 20140515
  Serious: Yes (Life-Threatening, Other)
  Sender: FDA-Public Use
  Company Number: PT-BAXTER-2013BAX025913

PATIENT
  Age: 55 Year
  Sex: Female

DRUGS (4)
  1. SEVOFLURANO BAXTER 100% L?QUIDO PARA INALA??O POR VAPORIZA??O [Suspect]
     Indication: MAINTENANCE OF ANAESTHESIA
  2. FENTANYL [Suspect]
     Indication: INDUCTION OF ANAESTHESIA
  3. PROPOFOL [Suspect]
     Indication: INDUCTION OF ANAESTHESIA
  4. ROCURONIUM [Suspect]
     Indication: INDUCTION OF ANAESTHESIA

REACTIONS (4)
  - Cardiac arrest [Recovered/Resolved]
  - Shock [Recovered/Resolved]
  - Cardiac failure congestive [Recovered/Resolved]
  - Stress cardiomyopathy [Recovered/Resolved]
